FAERS Safety Report 4283770-5 (Version None)
Quarter: 2004Q1

REPORT INFORMATION
  Report Type: 
  Country: None (occurrence: None)
  Receive Date: 20040130
  Receipt Date: 20040130
  Transmission Date: 20041129
  Serious: Yes (Hospitalization)
  Sender: FDA-Public Use
  Company Number: None

PATIENT
  Age: 80 Year
  Sex: Male

DRUGS (1)
  1. GEODON [Suspect]
     Dosage: 10 MG 2 DOSES INTRAMUSCULAR
     Route: 030

REACTIONS (1)
  - HYPOTENSION [None]
